FAERS Safety Report 8779333 (Version 2)
Quarter: 2012Q4

REPORT INFORMATION
  Report Type: 
  Country: BR (occurrence: BR)
  Receive Date: 20120911
  Receipt Date: 20120913
  Transmission Date: 20130627
  Serious: Yes (Life-Threatening, Hospitalization)
  Sender: FDA-Public Use
  Company Number: BR-B.I. PHARMACEUTICALS,INC./RIDGEFIELD-2012-BR-01008BR

PATIENT
  Age: 74 Year
  Sex: Female

DRUGS (4)
  1. PRADAXA [Suspect]
     Indication: CEREBROVASCULAR ACCIDENT PROPHYLAXIS
     Dosage: 300 mg
     Route: 048
     Dates: start: 201202, end: 201208
  2. PRADAXA [Suspect]
     Indication: ATRIAL FIBRILLATION
  3. CONCOR [Concomitant]
     Indication: HYPERTENSION
     Dosage: 10 mg
     Route: 048
  4. ENALAPRIL [Concomitant]
     Indication: HYPERTENSION

REACTIONS (1)
  - Pulmonary embolism [Not Recovered/Not Resolved]
